FAERS Safety Report 19236337 (Version 2)
Quarter: 2021Q4

REPORT INFORMATION
  Report Type: Spontaneous
  Country: GB (occurrence: GB)
  Receive Date: 20210510
  Receipt Date: 20211125
  Transmission Date: 20220303
  Serious: Yes (Other)
  Sender: FDA-Public Use
  Company Number: GB-MHRA-EYC 00248779

PATIENT
  Age: 61 Year
  Sex: Female
  Weight: 77.11 kg

DRUGS (2)
  1. CLARITHROMYCIN [Suspect]
     Active Substance: CLARITHROMYCIN
     Indication: Infected cyst
     Dosage: 500MG
     Route: 048
     Dates: start: 20210302, end: 20210316
  2. FLUCLOXACILLIN [Concomitant]
     Active Substance: FLUCLOXACILLIN
     Indication: Ill-defined disorder
     Dosage: UNK
     Route: 065

REACTIONS (1)
  - Anxiety [Recovered/Resolved with Sequelae]

NARRATIVE: CASE EVENT DATE: 20210304
